FAERS Safety Report 9701151 (Version 1)
Quarter: 2013Q4

REPORT INFORMATION
  Report Type: Spontaneous
  Country: US (occurrence: US)
  Receive Date: 20131121
  Receipt Date: 20131121
  Transmission Date: 20140711
  Serious: No
  Sender: FDA-Public Use
  Company Number: US-GILEAD-2008-0015826

PATIENT
  Sex: Male

DRUGS (9)
  1. LETAIRIS [Suspect]
     Indication: PULMONARY ARTERIAL HYPERTENSION
     Route: 048
     Dates: start: 20080207, end: 20080302
  2. LETAIRIS [Suspect]
     Route: 048
     Dates: start: 20080103, end: 20080207
  3. LETAIRIS [Suspect]
     Route: 048
     Dates: start: 20080303
  4. CALCIUM [Concomitant]
  5. KLOR-CON [Concomitant]
  6. FLOMAX [Concomitant]
  7. CITALOPRAM [Concomitant]
  8. WARFARIN SODIUM [Concomitant]
  9. ALTACE [Concomitant]

REACTIONS (4)
  - Muscle spasms [Recovered/Resolved]
  - Fatigue [Recovered/Resolved]
  - Vertigo [Recovered/Resolved]
  - Dizziness [Recovered/Resolved]
